FAERS Safety Report 23505973 (Version 1)
Quarter: 2024Q1

REPORT INFORMATION
  Report Type: Spontaneous
  Country: US (occurrence: None)
  Receive Date: 20240208
  Receipt Date: 20240208
  Transmission Date: 20240410
  Serious: Yes (unspecified)
  Sender: FDA-Public Use
  Company Number: None

PATIENT
  Age: 72 Year
  Sex: Female

DRUGS (7)
  1. DUPIXENT [Suspect]
     Active Substance: DUPILUMAB
     Indication: Dermatitis atopic
     Dosage: OTHER FREQUENCY : EVERY 14 DAYS;?
     Route: 058
     Dates: start: 20220927
  2. ATORVASTATIN [Concomitant]
     Active Substance: ATORVASTATIN
  3. HYDRALAZINE HYDROCHLORIDE [Concomitant]
     Active Substance: HYDRALAZINE HYDROCHLORIDE
  4. LOSARTAN [Concomitant]
     Active Substance: LOSARTAN
  5. metoprolol er 100mg [Concomitant]
  6. MYRBETRIQ [Concomitant]
     Active Substance: MIRABEGRON
  7. TRULICITY [Concomitant]
     Active Substance: DULAGLUTIDE

REACTIONS (1)
  - Visual impairment [None]

NARRATIVE: CASE EVENT DATE: 20240131
